FAERS Safety Report 8008651-2 (Version None)
Quarter: 2011Q4

REPORT INFORMATION
  Report Type: 
  Country: None (occurrence: None)
  Receive Date: 20111221
  Receipt Date: 20111207
  Transmission Date: 20120403
  Serious: Yes (Hospitalization)
  Sender: FDA-Public Use
  Company Number: 1000026257

PATIENT
  Age: 64 Year
  Sex: Female
  Weight: 55 kg

DRUGS (7)
  1. ROFLUMILAST (ROFLUMILAST) (TABLETS) [Suspect]
     Indication: CHRONIC OBSTRUCTIVE PULMONARY DISEASE
     Dosage: 500 MCG (500 MCG, 1 IN 1 D), ORAL
     Route: 048
     Dates: start: 20110824, end: 20110101
  2. ROFLUMILAST (ROFLUMILAST) (TABLETS) [Suspect]
     Indication: CHRONIC OBSTRUCTIVE PULMONARY DISEASE
     Dosage: 250 MCG (500 MCG, 1 IN 2 D), ORAL
     Route: 048
     Dates: start: 20110101
  3. CAPTOPRIL (CAPTOPRIL) (CAPTOPRIL) [Concomitant]
  4. FORMOTEROL (FORMOTEROL) (FORMOTEROL) [Concomitant]
  5. MEVERINE (MEBEVERINE HYDROCHLORIDE) (MEBEVERINE HYDROCHLORIDE) [Concomitant]
  6. SPIRIVA (TIOTROPIUM BROMIDE) (TIOTROPIUM BROMIDE) [Concomitant]
  7. VIANI FORTE (FLUTICASONE, SALMETEROL) (FLUTICASONE, SALMETEROL) [Concomitant]

REACTIONS (1)
  - CACHEXIA [None]
